FAERS Safety Report 14700372 (Version 2)
Quarter: 2018Q2

REPORT INFORMATION
  Report Type: Spontaneous
  Country: US (occurrence: US)
  Receive Date: 20180330
  Receipt Date: 20180531
  Transmission Date: 20180711
  Serious: Yes (Other)
  Sender: FDA-Public Use
  Company Number: US-LUNDBECK-DKLU2045899

PATIENT
  Age: 81 Year
  Sex: Female

DRUGS (3)
  1. NORTHERA [Suspect]
     Active Substance: DROXIDOPA
     Indication: AUTONOMIC NEUROPATHY
     Dosage: TITRATION C; COMPLETE
     Route: 065
     Dates: start: 201704
  2. NORTHERA [Suspect]
     Active Substance: DROXIDOPA
     Indication: SYNCOPE
  3. NORTHERA [Suspect]
     Active Substance: DROXIDOPA
     Indication: ORTHOSTATIC HYPOTENSION

REACTIONS (1)
  - Hip fracture [Unknown]

NARRATIVE: CASE EVENT DATE: 201802
